FAERS Safety Report 20577467 (Version 1)
Quarter: 2022Q1

REPORT INFORMATION
  Report Type: Spontaneous
  Country: US (occurrence: None)
  Receive Date: 20220309
  Receipt Date: 20220309
  Transmission Date: 20220424
  Serious: Yes (Other)
  Sender: FDA-Public Use
  Company Number: None

PATIENT
  Sex: Female
  Weight: 63 kg

DRUGS (5)
  1. DEXTROAMPHET SACCHARAT, AMPHET ASPARTATE, DEXTROAMPHET SULFATE AND AMP [Suspect]
     Active Substance: AMPHETAMINE ASPARTATE\AMPHETAMINE SULFATE\DEXTROAMPHETAMINE SACCHARATE\DEXTROAMPHETAMINE SULFATE
     Indication: Attention deficit hyperactivity disorder
     Dosage: OTHER QUANTITY : 1 TABLET(S);?FREQUENCY : 3 TIMES A DAY;?
     Route: 048
     Dates: start: 20220202, end: 20220309
  2. NORETHINDRONE [Concomitant]
     Active Substance: NORETHINDRONE
  3. ACYCLOVIR [Concomitant]
     Active Substance: ACYCLOVIR
  4. CELEXA [Concomitant]
     Active Substance: CITALOPRAM HYDROBROMIDE
  5. AMBIEN [Concomitant]
     Active Substance: ZOLPIDEM TARTRATE

REACTIONS (14)
  - Product substitution issue [None]
  - Quality of life decreased [None]
  - Therapeutic response decreased [None]
  - Headache [None]
  - Dyspepsia [None]
  - Abdominal pain upper [None]
  - Gastrointestinal disorder [None]
  - Hepatic pain [None]
  - Pollakiuria [None]
  - Fatigue [None]
  - Yawning [None]
  - Disturbance in attention [None]
  - Apathy [None]
  - Coordination abnormal [None]
